FAERS Safety Report 18436529 (Version 1)
Quarter: 2020Q4

REPORT INFORMATION
  Report Type: Spontaneous
  Country: US (occurrence: US)
  Receive Date: 20201028
  Receipt Date: 20201028
  Transmission Date: 20210114
  Serious: Yes (Death)
  Sender: FDA-Public Use
  Company Number: None

PATIENT
  Age: 80 Year
  Sex: Male
  Weight: 51.71 kg

DRUGS (13)
  1. LEVOTHYROXINE. [Concomitant]
     Active Substance: LEVOTHYROXINE
  2. ASPIRIN. [Concomitant]
     Active Substance: ASPIRIN
  3. CARAFATE [Concomitant]
     Active Substance: SUCRALFATE
  4. ONDANSETRON [Concomitant]
     Active Substance: ONDANSETRON
  5. VITAMIN C [Concomitant]
     Active Substance: ASCORBIC ACID
  6. KPHOS [Concomitant]
  7. MEGESTROL [Concomitant]
     Active Substance: MEGESTROL
  8. MONTELOUKAST [Concomitant]
  9. TAMSULOSIN [Concomitant]
     Active Substance: TAMSULOSIN
  10. PEMBROLIZUMAB. [Concomitant]
     Active Substance: PEMBROLIZUMAB
  11. IMATINIB 100MG TAB [Suspect]
     Active Substance: IMATINIB MESYLATE
  12. ALLOPURINOL. [Concomitant]
     Active Substance: ALLOPURINOL
  13. XGEVA [Concomitant]
     Active Substance: DENOSUMAB

REACTIONS (1)
  - Death [None]
